FAERS Safety Report 9478138 (Version 2)
Quarter: 2013Q3

REPORT INFORMATION
  Report Type: Spontaneous
  Country: US (occurrence: US)
  Receive Date: 20130827
  Receipt Date: 20130909
  Transmission Date: 20140515
  Serious: Yes (Hospitalization)
  Sender: FDA-Public Use
  Company Number: US-GENZYME-CERZ-1003143

PATIENT
  Age: 5 Year
  Sex: Female
  Weight: 19.5 kg

DRUGS (4)
  1. CEREZYME [Suspect]
     Indication: GAUCHER^S DISEASE
     Dosage: 61.53 U/KG, Q2W
     Route: 042
     Dates: start: 20130814
  2. ALBUTEROL [Concomitant]
     Indication: BRONCHIAL HYPERREACTIVITY
     Dosage: UNK
     Route: 065
  3. PULMICORT [Concomitant]
     Indication: BRONCHIAL HYPERREACTIVITY
     Dosage: UNK
     Route: 065
  4. SINGULAIR [Concomitant]
     Indication: HYPERSENSITIVITY
     Dosage: 4 MG, QD
     Route: 065

REACTIONS (2)
  - Bone infarction [Unknown]
  - Periostitis [Unknown]
